FAERS Safety Report 15967337 (Version 2)
Quarter: 2019Q1

REPORT INFORMATION
  Report Type: Report from Study
  Country: US (occurrence: US)
  Receive Date: 20190215
  Receipt Date: 20190222
  Transmission Date: 20190418
  Serious: No
  Sender: FDA-Public Use
  Company Number: US-SA-2019SA041424

PATIENT
  Age: 67 Year
  Sex: Female

DRUGS (2)
  1. ZETIA [Suspect]
     Active Substance: EZETIMIBE
     Dosage: UNK
     Dates: start: 20181218
  2. ALIROCUMAB [Suspect]
     Active Substance: ALIROCUMAB
     Indication: HYPERLIPIDAEMIA
     Dosage: 75 MG, QOW
     Route: 058
     Dates: start: 20190202, end: 20190202

REACTIONS (9)
  - Headache [Unknown]
  - Injection site pain [Unknown]
  - Herpes zoster [Unknown]
  - Pain [Unknown]
  - Cough [Unknown]
  - Nausea [Unknown]
  - Chest discomfort [Unknown]
  - Oropharyngeal pain [Unknown]
  - Abdominal pain upper [Unknown]

NARRATIVE: CASE EVENT DATE: 20190202
